FAERS Safety Report 20745687 (Version 2)
Quarter: 2022Q2

REPORT INFORMATION
  Report Type: Spontaneous
  Country: SI (occurrence: SI)
  Receive Date: 20220425
  Receipt Date: 20220503
  Transmission Date: 20220721
  Serious: Yes (Hospitalization, Other)
  Sender: FDA-Public Use
  Company Number: SI-MLMSERVICE-20220413-3500488-1

PATIENT
  Age: 55 Year
  Sex: Female

DRUGS (7)
  1. VENLAFAXINE HCL [Suspect]
     Active Substance: VENLAFAXINE HYDROCHLORIDE
     Indication: Generalised anxiety disorder
     Dosage: UNK
  2. TIANEPTINE [Suspect]
     Active Substance: TIANEPTINE
     Indication: Generalised anxiety disorder
     Dosage: UNK
  3. PREGABALIN [Concomitant]
     Active Substance: PREGABALIN
     Indication: Generalised anxiety disorder
     Dosage: UNK (GRADUALLY INCREASE)
  4. PREGABALIN [Concomitant]
     Active Substance: PREGABALIN
     Dosage: 300 MG, 1X/DAY (2X150 MG)
  5. PREGABALIN [Concomitant]
     Active Substance: PREGABALIN
     Dosage: 25 MG (UP TO 2X PER DAY)
  6. PREGABALIN [Concomitant]
     Active Substance: PREGABALIN
     Dosage: UNK (GRADUALLY INCREASE)
  7. PREGABALIN [Concomitant]
     Active Substance: PREGABALIN
     Dosage: 150 MG, 1X/DAY (3X50 MG)

REACTIONS (1)
  - Poisoning deliberate [Unknown]
